FAERS Safety Report 4545787-2 (Version None)
Quarter: 2005Q1

REPORT INFORMATION
  Report Type: 
  Country: None (occurrence: None)
  Receive Date: 20050104
  Receipt Date: 20050104
  Transmission Date: 20050727
  Serious: Yes (Hospitalization)
  Sender: FDA-Public Use
  Company Number: None

PATIENT
  Age: 3 Week
  Sex: Male

DRUGS (1)
  1. REGLAN [Suspect]
     Dosage: LIQUID

REACTIONS (1)
  - MEDICATION ERROR [None]
